FAERS Safety Report 4810557-4 (Version None)
Quarter: 2005Q4

REPORT INFORMATION
  Report Type: 
  Country: None (occurrence: None)
  Receive Date: 20051026
  Receipt Date: 20050922
  Transmission Date: 20060501
  Serious: Yes (Hospitalization)
  Sender: FDA-Public Use
  Company Number: US-BRISTOL-MYERS SQUIBB COMPANY-13118765

PATIENT
  Age: 45 Year
  Sex: Male

DRUGS (2)
  1. ERBITUX [Suspect]
     Indication: PANCREATIC CARCINOMA
     Route: 042
     Dates: start: 20050919, end: 20050919
  2. PROTONIX [Concomitant]

REACTIONS (3)
  - ARTHRALGIA [None]
  - CHILLS [None]
  - FEELING ABNORMAL [None]
